FAERS Safety Report 8983422 (Version 5)
Quarter: 2014Q1

REPORT INFORMATION
  Report Type: Spontaneous
  Country: DE (occurrence: DE)
  Receive Date: 20121224
  Receipt Date: 20140225
  Transmission Date: 20141002
  Serious: Yes (Hospitalization)
  Sender: FDA-Public Use
  Company Number: DE-BIOGENIDEC-2012BI060059

PATIENT
  Age: 35 Year
  Sex: Female
  Weight: 80 kg

DRUGS (3)
  1. TYSABRI [Suspect]
     Indication: MULTIPLE SCLEROSIS
     Route: 042
     Dates: start: 20081009, end: 20121023
  2. ORAL CONTRACEPTIVE [Concomitant]
  3. IBUPROFEN [Concomitant]

REACTIONS (4)
  - Progressive multifocal leukoencephalopathy [Not Recovered/Not Resolved]
  - Immune reconstitution inflammatory syndrome [Not Recovered/Not Resolved]
  - Epilepsy [Not Recovered/Not Resolved]
  - Multiple sclerosis relapse [Unknown]
